FAERS Safety Report 9711005 (Version 1)
Quarter: 2013Q4

REPORT INFORMATION
  Report Type: Spontaneous
  Country: US (occurrence: None)
  Receive Date: 20131125
  Receipt Date: 20131125
  Transmission Date: 20140711
  Serious: No
  Sender: FDA-Public Use
  Company Number: None

PATIENT
  Age: 78 Year
  Sex: Male
  Weight: 83.92 kg

DRUGS (1)
  1. HUMALOG KWIK PEN [Suspect]

REACTIONS (3)
  - Device malfunction [None]
  - Glycosylated haemoglobin increased [None]
  - Blood glucose increased [None]
